FAERS Safety Report 21424711 (Version 2)
Quarter: 2022Q4

REPORT INFORMATION
  Report Type: Report from Study
  Country: US (occurrence: US)
  Receive Date: 20221007
  Receipt Date: 20221123
  Transmission Date: 20230113
  Serious: Yes (Hospitalization, Other)
  Sender: FDA-Public Use
  Company Number: US-BRISTOL-MYERS SQUIBB COMPANY-2022-117666

PATIENT
  Age: 69 Year
  Sex: Female
  Weight: 64.00 kg

DRUGS (1)
  1. LUCITANIB [Suspect]
     Active Substance: LUCITANIB
     Indication: Neoplasm malignant
     Dosage: DRUG WAS INTERRUPTED DUE TO SAE
     Route: 048
     Dates: start: 20210623, end: 20220831

REACTIONS (1)
  - Pneumonia [Recovered/Resolved]

NARRATIVE: CASE EVENT DATE: 20220926
